FAERS Safety Report 9333762 (Version 2)
Quarter: 2013Q3

REPORT INFORMATION
  Report Type: Spontaneous
  Country: US (occurrence: US)
  Receive Date: 20130606
  Receipt Date: 20130718
  Transmission Date: 20140515
  Serious: No
  Sender: FDA-Public Use
  Company Number: US-009507513-1306USA000941

PATIENT
  Age: 53 Year
  Sex: Female
  Weight: 76 kg

DRUGS (9)
  1. PEGINTRON [Suspect]
     Indication: HEPATITIS C
     Dosage: 120 MICROGRAM, QW 0.5 ML, REDIPEN
     Route: 058
     Dates: start: 20130308
  2. RIBAVIRIN [Suspect]
     Dosage: 400 MG, BID
     Route: 048
  3. ALPRAZOLAM [Concomitant]
     Indication: ANXIETY
     Dosage: 0.25 MG, TID, PRN
     Route: 048
  4. HYDROXYZINE [Concomitant]
     Indication: PRURITUS
     Dosage: 0.25 MG, Q4D, PRN
     Route: 048
  5. KEPPRA [Concomitant]
     Dosage: 500 MG, BID
     Route: 048
  6. OMEPRAZOLE [Concomitant]
     Dosage: 20 MG, DAILY
     Route: 048
  7. OXYCODONE [Concomitant]
     Indication: PAIN
     Dosage: 5 MG, PRN, EVERY 6 HOURS
     Route: 048
  8. PALIPERIDONE [Concomitant]
     Dosage: 6 MG DAILY
     Route: 048
  9. PERMETHRIN [Concomitant]
     Route: 061

REACTIONS (4)
  - Hepatitis C RNA increased [Unknown]
  - Drug dose omission [Unknown]
  - Product quality issue [Unknown]
  - Device malfunction [Unknown]
